FAERS Safety Report 6016409-9 (Version None)
Quarter: 2008Q4

REPORT INFORMATION
  Report Type: 
  Country: None (occurrence: None)
  Receive Date: 20081218
  Receipt Date: 20081208
  Transmission Date: 20090506
  Serious: Yes (Hospitalization, Other)
  Sender: FDA-Public Use
  Company Number: 08JP001115

PATIENT
  Age: 61 Year
  Sex: Female

DRUGS (5)
  1. LITHIUM CARBONATE [Suspect]
     Indication: MAJOR DEPRESSION
     Dosage: 600 MG, QD
  2. FLUVOXAMINE MALEATE [Concomitant]
  3. VALPROATE SODIUM [Concomitant]
  4. CLONAZEPAM [Concomitant]
  5. LEVOTHYROXINE SODIUM [Concomitant]

REACTIONS (10)
  - ACALCULIA [None]
  - AGNOSIA [None]
  - APRAXIA [None]
  - ATAXIA [None]
  - ENCEPHALOPATHY [None]
  - GOITRE [None]
  - HYPERTHYROIDISM [None]
  - PERSEVERATION [None]
  - THYROIDITIS [None]
  - TREMOR [None]
